FAERS Safety Report 8966956 (Version 1)
Quarter: 2012Q4

REPORT INFORMATION
  Report Type: 
  Country: AZ (occurrence: AZ)
  Receive Date: 20121217
  Receipt Date: 20121217
  Transmission Date: 20130627
  Serious: Yes (Other)
  Sender: FDA-Public Use
  Company Number: AZ-BAYER-2012-130976

PATIENT
  Age: 35 Year
  Sex: Female

DRUGS (1)
  1. MIRENA [Suspect]
     Dosage: 20 mcg/24hr, CONT
     Route: 015
     Dates: start: 20120915

REACTIONS (2)
  - Thyroid neoplasm [Not Recovered/Not Resolved]
  - Asphyxia [Not Recovered/Not Resolved]
